FAERS Safety Report 5501855-X (Version None)
Quarter: 2007Q4

REPORT INFORMATION
  Report Type: 
  Country: None (occurrence: None)
  Receive Date: 20071030
  Receipt Date: 20070417
  Transmission Date: 20080405
  Serious: No
  Sender: FDA-Public Use
  Company Number: A0647655A

PATIENT
  Sex: Female

DRUGS (10)
  1. SEREVENT [Suspect]
     Indication: ASTHMA
     Dosage: 1PUFF TWICE PER DAY
     Route: 055
     Dates: start: 20070401
  2. ADVAIR DISKUS 100/50 [Suspect]
     Indication: ASTHMA
     Dosage: 1PUFF PER DAY
     Route: 055
     Dates: start: 20050101
  3. SYNTHROID [Concomitant]
  4. PROTONIX [Concomitant]
  5. NEXIUM [Concomitant]
  6. BENICAR [Concomitant]
  7. ANAPROX [Concomitant]
  8. GLUCOVANCE [Concomitant]
  9. NASONEX [Concomitant]
  10. LIPITOR [Concomitant]

REACTIONS (4)
  - BLOOD GLUCOSE INCREASED [None]
  - BLOOD PRESSURE INCREASED [None]
  - DRUG INEFFECTIVE [None]
  - DYSPNOEA [None]
